FAERS Safety Report 4322265-7 (Version None)
Quarter: 2004Q1

REPORT INFORMATION
  Report Type: 
  Country: None (occurrence: None)
  Receive Date: 20040319
  Receipt Date: 20040310
  Transmission Date: 20041129
  Serious: Yes (Death)
  Sender: FDA-Public Use
  Company Number: F01200400491

PATIENT
  Age: 80 Year
  Sex: Female

DRUGS (13)
  1. (OXALIPLATIN) - SOLUTION - UNIT DOSE : UNKNOWN [Suspect]
     Indication: COLORECTAL CANCER
     Dosage: 130 MG/M2, Q3W
     Dates: start: 20040220, end: 20040220
  2. (CAPECITABINE) 850 MG/M2 [Suspect]
     Dosage: 850 MG/M2 TWICE DAILY FROM D1 TO D15, Q3W INTRAVENOUS NOS
     Route: 048
     Dates: start: 20040220, end: 20040305
  3. AVASTIN [Suspect]
     Dosage: INTRAVENOUS NOS
     Route: 042
     Dates: start: 20040220, end: 20040220
  4. ATENOLOL [Concomitant]
  5. ADALAT [Concomitant]
  6. ACCUPRIL [Concomitant]
  7. COLESTID [Concomitant]
  8. CALCIUM [Concomitant]
  9. CENTRUM (MINERALS NOS-VITAMINS NOS) [Concomitant]
  10. ASPIRIN [Concomitant]
  11. NIFEDIPINE [Concomitant]
  12. FAMOTIDINE [Concomitant]
  13. FUROMEX (FUROSEMIDE) [Concomitant]

REACTIONS (9)
  - ARRHYTHMIA [None]
  - BLOOD GLUCOSE INCREASED [None]
  - BLOOD POTASSIUM DECREASED [None]
  - BLOOD SODIUM DECREASED [None]
  - CANDIDIASIS [None]
  - DIARRHOEA [None]
  - LOSS OF CONSCIOUSNESS [None]
  - MEAN PLATELET VOLUME ABNORMAL [None]
  - NAUSEA [None]
